FAERS Safety Report 13905095 (Version 1)
Quarter: 2017Q3

REPORT INFORMATION
  Report Type: Spontaneous
  Country: US (occurrence: None)
  Receive Date: 20170824
  Receipt Date: 20170824
  Transmission Date: 20171127
  Serious: Yes (Hospitalization)
  Sender: FDA-Public Use
  Company Number: None

PATIENT
  Age: 69 Year
  Sex: Male

DRUGS (9)
  1. LONSURF [Suspect]
     Active Substance: TIPIRACIL HYDROCHLORIDE\TRIFLURIDINE
     Indication: COLON CANCER
     Route: 048
     Dates: start: 20170703
  2. ELIQUIS [Concomitant]
     Active Substance: APIXABAN
  3. MORPHINE [Concomitant]
     Active Substance: MORPHINE
  4. VITAMIN B [Concomitant]
     Active Substance: VITAMIN B
  5. LASIX [Concomitant]
     Active Substance: FUROSEMIDE
  6. MULTI VIT [Concomitant]
  7. FETANYL [Concomitant]
  8. CALCIUM [Concomitant]
     Active Substance: CALCIUM
  9. CONDROLITE [Concomitant]

REACTIONS (3)
  - Product quality issue [None]
  - Drug ineffective [None]
  - Malignant neoplasm progression [None]

NARRATIVE: CASE EVENT DATE: 2017
